FAERS Safety Report 19675438 (Version 2)
Quarter: 2021Q3

REPORT INFORMATION
  Report Type: Spontaneous
  Country: NO (occurrence: NO)
  Receive Date: 20210809
  Receipt Date: 20210820
  Transmission Date: 20211014
  Serious: Yes (Other)
  Sender: FDA-Public Use
  Company Number: NO-MYLANLABS-2016M1013691

PATIENT
  Age: 3 Year
  Sex: Female

DRUGS (2)
  1. CARBOPLATIN. [Suspect]
     Active Substance: CARBOPLATIN
     Indication: MEDULLOBLASTOMA
     Dosage: UNK
     Route: 065
  2. VEPESID [Suspect]
     Active Substance: ETOPOSIDE
     Indication: MEDULLOBLASTOMA
     Dosage: UNK

REACTIONS (5)
  - Renal impairment [Recovered/Resolved]
  - Cholecystitis infective [Recovering/Resolving]
  - Product use in unapproved indication [Recovered/Resolved]
  - Cholangitis infective [Recovering/Resolving]
  - Bone marrow failure [Recovered/Resolved]
